FAERS Safety Report 8421491 (Version 4)
Quarter: 2013Q3

REPORT INFORMATION
  Report Type: Spontaneous
  Country: US (occurrence: US)
  Receive Date: 20120222
  Receipt Date: 20130927
  Transmission Date: 20140515
  Serious: Yes (Life-Threatening, Hospitalization, Other)
  Sender: FDA-Public Use
  Company Number: PHEH2012US003689

PATIENT
  Sex: Female

DRUGS (12)
  1. TEKTURNA [Suspect]
     Dosage: 150 MG, QD
  2. TEGRETOL [Suspect]
     Indication: CONVULSION
     Dosage: 400 UKN, BID
  3. LAMICTAL [Suspect]
     Indication: EPILEPSY
  4. DILANTIN [Suspect]
     Indication: EPILEPSY
     Dosage: WHITE AND ORANGE PILLS, TWO TIMES A DAY
  5. DEPAKOTE [Suspect]
     Indication: CONVULSION
  6. NEURONTIN [Suspect]
     Indication: CONVULSION
  7. KEPPRA [Suspect]
     Indication: CONVULSION
     Dates: end: 2008
  8. ZYPREXA [Suspect]
     Indication: DEPRESSION POSTOPERATIVE
  9. ALTACE [Concomitant]
     Dosage: 2 DF(10), DAILY
  10. LESCOL XL [Concomitant]
  11. NOVOLOG [Concomitant]
  12. FOLIC ACID [Concomitant]
     Dosage: 1 MG, DAILY

REACTIONS (18)
  - Diabetes mellitus [Unknown]
  - Brain injury [Unknown]
  - Gingival hyperplasia [Unknown]
  - Gingival swelling [Unknown]
  - Transient ischaemic attack [Unknown]
  - Loss of consciousness [Unknown]
  - Memory impairment [Unknown]
  - Thyroid neoplasm [Unknown]
  - Road traffic accident [Unknown]
  - Convulsion [Unknown]
  - Hypertension [Unknown]
  - Hypothyroidism [Unknown]
  - Tremor [Unknown]
  - Aggression [Unknown]
  - Depression [Unknown]
  - Pain [Unknown]
  - Feeling abnormal [Unknown]
  - Blood cholesterol increased [Unknown]
